FAERS Safety Report 7248012-7 (Version None)
Quarter: 2011Q1

REPORT INFORMATION
  Report Type: 
  Country: None (occurrence: None)
  Receive Date: 20110127
  Receipt Date: 20110120
  Transmission Date: 20110831
  Serious: Yes (Hospitalization)
  Sender: FDA-Public Use
  Company Number: JP-PFIZER INC-2011013633

PATIENT
  Sex: Male

DRUGS (9)
  1. REYATAZ [Suspect]
     Indication: HIV INFECTION
     Dosage: UNK
     Dates: start: 20091022, end: 20091202
  2. TRUVADA [Suspect]
     Indication: HIV INFECTION
     Dosage: 1 TABLET DAILY
     Dates: start: 20091022, end: 20091202
  3. CRAVIT [Concomitant]
     Indication: MYCOBACTERIUM AVIUM COMPLEX INFECTION
     Dosage: 500 MG, 1X/DAY
     Dates: start: 20091120, end: 20091215
  4. EBUTOL [Concomitant]
     Indication: MYCOBACTERIUM AVIUM COMPLEX INFECTION
     Dosage: 750 MG, 1X/DAY
     Dates: start: 20091120
  5. PREZISTA [Suspect]
     Indication: HIV INFECTION
     Dosage: UNK
     Dates: start: 20091203
  6. NORVIR [Suspect]
     Indication: HIV INFECTION
     Dosage: UNK
     Dates: start: 20091022
  7. CLARITH [Concomitant]
     Indication: MYCOBACTERIUM AVIUM COMPLEX INFECTION
     Dosage: 400 MG, 2X/DAY
     Dates: start: 20091120
  8. RIFABUTIN [Suspect]
     Indication: MYCOBACTERIUM AVIUM COMPLEX INFECTION
     Dosage: 150 MG, 3 TIMES A WEEK
     Dates: start: 20091120, end: 20091211
  9. EPZICOM [Suspect]
     Indication: HIV INFECTION
     Dosage: 1 TABLET DAILY
     Dates: start: 20091211

REACTIONS (1)
  - CYTOMEGALOVIRUS CHORIORETINITIS [None]
